FAERS Safety Report 9528855 (Version 2)
Quarter: 2013Q4

REPORT INFORMATION
  Report Type: Spontaneous
  Country: IT (occurrence: IT)
  Receive Date: 20130917
  Receipt Date: 20131202
  Transmission Date: 20140711
  Serious: Yes (Hospitalization)
  Sender: FDA-Public Use
  Company Number: IT-BAYER-2013-111738

PATIENT
  Age: 84 Year
  Sex: Female

DRUGS (9)
  1. CARDIOASPIRIN [Suspect]
     Indication: CORONARY ARTERY BYPASS
     Dosage: DAILY DOSE 100 MG
     Route: 048
     Dates: start: 20080901, end: 20130912
  2. COUMADIN [Interacting]
     Indication: ATRIAL FIBRILLATION
     Dosage: 17.5 MG, OW
     Route: 048
     Dates: start: 20100901, end: 20130912
  3. CONGESCOR [Concomitant]
  4. LASIX [Concomitant]
     Dosage: UNK
  5. ESKIM [Concomitant]
  6. LUVION [Concomitant]
     Dosage: UNK
  7. PANTORC [Concomitant]
  8. ATORVASTATIN [Concomitant]
  9. ZYLORIC [Concomitant]
     Dosage: UNK

REACTIONS (4)
  - Subarachnoid haemorrhage [Not Recovered/Not Resolved]
  - Dizziness [Not Recovered/Not Resolved]
  - Headache [Not Recovered/Not Resolved]
  - Drug interaction [None]
